FAERS Safety Report 7067783-6 (Version None)
Quarter: 2010Q4

REPORT INFORMATION
  Report Type: 
  Country: None (occurrence: None)
  Receive Date: 20101028
  Receipt Date: 20100608
  Transmission Date: 20110411
  Serious: No
  Sender: FDA-Public Use
  Company Number: A0863787A

PATIENT
  Age: 63 Year
  Sex: Male

DRUGS (4)
  1. SEREVENT [Suspect]
     Indication: ASTHMA
     Dosage: 1BLS TWICE PER DAY
     Route: 055
  2. OTC GENERIC ALLERGY MEDICATION [Concomitant]
  3. ALBUTEROL [Concomitant]
  4. PROAIR HFA [Concomitant]

REACTIONS (1)
  - DRUG INEFFECTIVE [None]
